FAERS Safety Report 14860994 (Version 2)
Quarter: 2018Q2

REPORT INFORMATION
  Report Type: Spontaneous
  Country: US (occurrence: US)
  Receive Date: 20180508
  Receipt Date: 20180629
  Transmission Date: 20180711
  Serious: Yes (Other)
  Sender: FDA-Public Use
  Company Number: US-AKORN PHARMACEUTICALS-2018AKN00596

PATIENT
  Age: 25 Year
  Sex: Male
  Weight: 97.51 kg

DRUGS (3)
  1. MYORISAN [Suspect]
     Active Substance: ISOTRETINOIN
     Indication: ACNE CYSTIC
     Dosage: 40MG
     Dates: start: 20180322, end: 20180417
  2. TESTOSTERONE RUB [Concomitant]
  3. MANY UNSPECIFIED OTHERS [Concomitant]

REACTIONS (3)
  - Erectile dysfunction [Recovering/Resolving]
  - Depression [Recovering/Resolving]
  - Off label use [Recovered/Resolved]

NARRATIVE: CASE EVENT DATE: 20180322
